FAERS Safety Report 7659930-X (Version None)
Quarter: 2011Q3

REPORT INFORMATION
  Report Type: 
  Country: None (occurrence: None)
  Receive Date: 20110805
  Receipt Date: 20110803
  Transmission Date: 20111222
  Serious: Yes (Other)
  Sender: FDA-Public Use
  Company Number: US-GENZYME-CAMP-1001754

PATIENT
  Sex: Female
  Weight: 71.655 kg

DRUGS (5)
  1. EFFEXOR [Concomitant]
     Indication: DEPRESSION
     Dosage: 150 MG, QD
     Route: 048
  2. NEXIUM [Concomitant]
     Indication: GASTROOESOPHAGEAL REFLUX DISEASE
     Dosage: 40 MG, QD
     Route: 048
  3. RESTORIL [Concomitant]
     Indication: INSOMNIA
     Dosage: 30 MG, QD
     Route: 048
  4. CAMPATH [Suspect]
     Indication: MYELODYSPLASTIC SYNDROME
     Dosage: 10 MG, QD
     Route: 042
     Dates: start: 20110328, end: 20110406
  5. ANTIVERT [Concomitant]
     Indication: VERTIGO
     Dosage: 25 MG, QD
     Route: 048

REACTIONS (1)
  - MYELODYSPLASTIC SYNDROME [None]
